FAERS Safety Report 24603702 (Version 1)
Quarter: 2024Q4

REPORT INFORMATION
  Report Type: Spontaneous
  Country: US (occurrence: US)
  Receive Date: 20241111
  Receipt Date: 20241111
  Transmission Date: 20250114
  Serious: Yes (Other)
  Sender: UCB
  Company Number: US-UCBSA-2024057366

PATIENT
  Sex: Female

DRUGS (2)
  1. KEPPRA [Suspect]
     Active Substance: LEVETIRACETAM
     Indication: Epilepsy
     Dosage: 3 PILLS EVERY FEW DAYS
  2. KEPPRA [Suspect]
     Active Substance: LEVETIRACETAM
     Dosage: 5 PILLS EVERY

REACTIONS (3)
  - Seizure [Not Recovered/Not Resolved]
  - Attention deficit hyperactivity disorder [Not Recovered/Not Resolved]
  - Incorrect dose administered [Unknown]
